FAERS Safety Report 19655635 (Version 1)
Quarter: 2021Q3

REPORT INFORMATION
  Report Type: Spontaneous
  Country: FR (occurrence: FR)
  Receive Date: 20210804
  Receipt Date: 20210804
  Transmission Date: 20211014
  Serious: Yes (Hospitalization, Other)
  Sender: FDA-Public Use
  Company Number: NVSC2021FR167711

PATIENT
  Sex: Female

DRUGS (2)
  1. OFLOXACIN. [Suspect]
     Active Substance: OFLOXACIN
     Indication: BED BUG INFESTATION
     Dosage: 400 MG, QD
     Route: 065
     Dates: start: 20210619
  2. KETOCONAZOLE. [Concomitant]
     Active Substance: KETOCONAZOLE
     Indication: PRODUCT USED FOR UNKNOWN INDICATION
     Route: 065

REACTIONS (8)
  - Skin oedema [Not Recovered/Not Resolved]
  - Pustule [Unknown]
  - Blister [Unknown]
  - Burns third degree [Unknown]
  - Skin weeping [Unknown]
  - Skin plaque [Not Recovered/Not Resolved]
  - Pain [Recovered/Resolved]
  - Acute febrile neutrophilic dermatosis [Unknown]

NARRATIVE: CASE EVENT DATE: 202106
